FAERS Safety Report 8623557 (Version 2)
Quarter: 2012Q4

REPORT INFORMATION
  Report Type: Report from Study
  Country: FR (occurrence: FR)
  Receive Date: 20120620
  Receipt Date: 20121231
  Transmission Date: 20130627
  Serious: Yes (Other)
  Sender: FDA-Public Use
  Company Number: FR-MPIJNJ-2012-02426

PATIENT

DRUGS (1)
  1. VELCADE [Suspect]
     Indication: WALDENSTROM^S MACROGLOBULINAEMIA
     Dosage: 2.1 mg, UNK
     Route: 042
     Dates: start: 20110921, end: 20111111

REACTIONS (1)
  - Fall [Recovered/Resolved]
